FAERS Safety Report 16935828 (Version 1)
Quarter: 2019Q4

REPORT INFORMATION
  Report Type: Report from Study
  Country: US (occurrence: US)
  Receive Date: 20191018
  Receipt Date: 20191018
  Transmission Date: 20200122
  Serious: Yes (Death)
  Sender: FDA-Public Use
  Company Number: US-ASTRAZENECA-2019SF48186

PATIENT
  Sex: Female

DRUGS (13)
  1. BYSTOLIC [Concomitant]
     Active Substance: NEBIVOLOL HYDROCHLORIDE
  2. CARISOPRODOL. [Concomitant]
     Active Substance: CARISOPRODOL
  3. PREDNISONE. [Concomitant]
     Active Substance: PREDNISONE
  4. SULFAMETHOXAZOLE-TRIME [Concomitant]
     Dosage: 800-160
  5. PEPCID AC [Concomitant]
     Active Substance: FAMOTIDINE
  6. ADVIL [Concomitant]
     Active Substance: IBUPROFEN
  7. OXYCODONE HYDROCHLORIDE. [Concomitant]
     Active Substance: OXYCODONE HYDROCHLORIDE
  8. ESZOPICLONE. [Concomitant]
     Active Substance: ESZOPICLONE
  9. OXYGEN. [Concomitant]
     Active Substance: OXYGEN
  10. SOMA [Concomitant]
     Active Substance: CARISOPRODOL
  11. TAGRISSO [Suspect]
     Active Substance: OSIMERTINIB
     Indication: NON-SMALL CELL LUNG CANCER
     Route: 048
     Dates: start: 20190611
  12. LUNESTA [Concomitant]
     Active Substance: ESZOPICLONE
  13. PANTOPRAZOLE SODIUM. [Concomitant]
     Active Substance: PANTOPRAZOLE SODIUM

REACTIONS (1)
  - Death [Fatal]
